FAERS Safety Report 9993480 (Version 5)
Quarter: 2014Q2

REPORT INFORMATION
  Report Type: Report from Study
  Country: TR (occurrence: TR)
  Receive Date: 20140310
  Receipt Date: 20140408
  Transmission Date: 20141212
  Serious: Yes (Hospitalization)
  Sender: FDA-Public Use
  Company Number: TR-JNJFOC-20140301215

PATIENT
  Age: 69 Year
  Sex: Male
  Weight: 68.5 kg

DRUGS (61)
  1. IBRUTINIB [Suspect]
     Indication: LYMPHOCYTIC LEUKAEMIA
     Route: 048
  2. IBRUTINIB [Suspect]
     Indication: LYMPHOCYTIC LEUKAEMIA
     Dosage: MEDICAL KIT NUMBER 68797
     Route: 048
     Dates: start: 20130905, end: 20140228
  3. IBRUTINIB [Suspect]
     Indication: CHRONIC LYMPHOCYTIC LEUKAEMIA
     Dosage: MEDICAL KIT NUMBER 68797
     Route: 048
     Dates: start: 20130905, end: 20140228
  4. IBRUTINIB [Suspect]
     Indication: CHRONIC LYMPHOCYTIC LEUKAEMIA
     Route: 048
  5. BENDAMUSTINE [Suspect]
     Indication: LYMPHOCYTIC LEUKAEMIA
     Dosage: MEDICAL KIT NUMBER 11535
     Route: 042
     Dates: start: 20130905
  6. BENDAMUSTINE [Suspect]
     Indication: CHRONIC LYMPHOCYTIC LEUKAEMIA
     Dosage: MEDICAL KIT NUMBER 11535
     Route: 042
     Dates: start: 20130905
  7. RITUXIMAB [Suspect]
     Indication: LYMPHOCYTIC LEUKAEMIA
     Route: 042
     Dates: start: 20130904
  8. RITUXIMAB [Suspect]
     Indication: CHRONIC LYMPHOCYTIC LEUKAEMIA
     Route: 042
     Dates: start: 20130904
  9. PULCET [Concomitant]
     Indication: GASTROINTESTINAL DISORDER THERAPY
     Route: 048
  10. ALYSE [Concomitant]
     Indication: BURNING SENSATION
     Route: 048
     Dates: end: 20131219
  11. VASOSERC [Concomitant]
     Indication: DIZZINESS
     Route: 048
  12. PAROL [Concomitant]
     Indication: BREAST PAIN
     Route: 048
     Dates: start: 20140214, end: 20140225
  13. PAROL [Concomitant]
     Indication: BREAST PAIN
     Dosage: 1 TABLET
     Route: 048
  14. PAROL [Concomitant]
     Indication: BREAST PAIN
     Route: 048
  15. PAROL [Concomitant]
     Indication: PROPHYLAXIS
     Dosage: 1 TABLET
     Route: 048
  16. PAROL [Concomitant]
     Indication: PROPHYLAXIS
     Route: 048
     Dates: start: 20140214, end: 20140225
  17. PAROL [Concomitant]
     Indication: PROPHYLAXIS
     Route: 048
  18. PAROL [Concomitant]
     Indication: PREMEDICATION
     Route: 048
  19. PAROL [Concomitant]
     Indication: PREMEDICATION
     Route: 048
     Dates: start: 20140214, end: 20140225
  20. PAROL [Concomitant]
     Indication: PREMEDICATION
     Dosage: 1 TABLET
     Route: 048
  21. SYSTRAL [Concomitant]
     Indication: PREMEDICATION
     Route: 042
  22. SYSTRAL [Concomitant]
     Indication: PREMEDICATION
     Route: 042
     Dates: start: 20140212, end: 20140213
  23. DEKORT [Concomitant]
     Indication: PREMEDICATION
     Route: 042
  24. DEKORT [Concomitant]
     Indication: PREMEDICATION
     Route: 042
     Dates: start: 20140212, end: 20140212
  25. URIKOLIZ [Concomitant]
     Indication: PROPHYLAXIS
     Dosage: 0.5 TABLET
     Route: 048
     Dates: start: 20140212, end: 20140212
  26. URIKOLIZ [Concomitant]
     Indication: PROPHYLAXIS
     Route: 048
  27. URIKOLIZ [Concomitant]
     Indication: PROPHYLAXIS
     Dosage: 0.5 TABLET
     Route: 048
     Dates: start: 20130918
  28. URIKOLIZ [Concomitant]
     Indication: PREMEDICATION
     Dosage: 0.5 TABLET
     Route: 048
     Dates: start: 20140212, end: 20140212
  29. URIKOLIZ [Concomitant]
     Indication: PREMEDICATION
     Route: 048
  30. URIKOLIZ [Concomitant]
     Indication: PREMEDICATION
     Dosage: 0.5 TABLET
     Route: 048
     Dates: start: 20130918
  31. DIAZEPAM [Concomitant]
     Indication: PREMEDICATION
     Route: 048
  32. DIAZEPAM [Concomitant]
     Indication: PREMEDICATION
     Route: 048
     Dates: start: 20140212, end: 20140213
  33. DUOVEL [Concomitant]
     Indication: PREMEDICATION
     Route: 048
     Dates: start: 20140212, end: 20140213
  34. DUOVEL [Concomitant]
     Indication: PREMEDICATION
     Route: 048
  35. DEMEPRAZOL [Concomitant]
     Indication: GASTROINTESTINAL DISORDER THERAPY
     Route: 048
  36. DEMEPRAZOL [Concomitant]
     Indication: GASTROINTESTINAL DISORDER THERAPY
     Route: 048
  37. DEMEPRAZOL [Concomitant]
     Indication: PROPHYLAXIS AGAINST GASTROINTESTINAL ULCER
     Route: 048
  38. DEMEPRAZOL [Concomitant]
     Indication: PROPHYLAXIS AGAINST GASTROINTESTINAL ULCER
     Route: 048
  39. PANTPAS [Concomitant]
     Indication: PROPHYLAXIS AGAINST GASTROINTESTINAL ULCER
     Route: 042
  40. LEVONAT [Concomitant]
     Indication: INFECTION PROPHYLAXIS
     Route: 048
  41. NAVOBAN [Concomitant]
     Indication: PREMEDICATION
     Route: 042
  42. OROHEKS PLUS GARGARA [Concomitant]
     Indication: PERIODONTAL DISEASE
     Route: 061
  43. OROHEKS PLUS GARGARA [Concomitant]
     Indication: PERIODONTAL DISEASE
     Route: 061
  44. AUGMENTIN [Concomitant]
     Indication: PROPHYLAXIS
     Route: 048
  45. CIPRO [Concomitant]
     Indication: PROPHYLAXIS
     Route: 048
  46. MIKOSTATIN [Concomitant]
     Indication: PERIODONTAL DISEASE
     Dosage: 1 OTHER
     Route: 050
  47. MAGNESIUM SULFATE [Concomitant]
     Indication: PROPHYLAXIS
     Route: 042
  48. LEUCOSTIM [Concomitant]
     Indication: PROPHYLAXIS
     Route: 058
  49. NEUPOGEN [Concomitant]
     Indication: PROPHYLAXIS
     Route: 058
     Dates: start: 20140216, end: 20140220
  50. NEUPOGEN [Concomitant]
     Indication: PROPHYLAXIS
     Dosage: 30000000 UNITS
     Route: 058
  51. PRILOSEC [Concomitant]
     Indication: PREMEDICATION
     Route: 042
  52. BENEXOL B12 [Concomitant]
     Indication: NUTRITIONAL SUPPLEMENTATION
     Route: 048
  53. METAMIDOL [Concomitant]
     Indication: PREMEDICATION
     Route: 048
  54. FORTIMEL [Concomitant]
     Indication: NUTRITIONAL SUPPLEMENTATION
     Route: 048
  55. TYLOL-HOT [Concomitant]
     Indication: PREMEDICATION
     Route: 048
  56. TYLOL-HOT [Concomitant]
     Indication: PREMEDICATION
     Route: 048
     Dates: start: 20140212, end: 20140212
  57. DYGRATYL [Concomitant]
     Indication: PREMEDICATION
     Route: 042
  58. DUROGESIC [Concomitant]
     Indication: BREAST PAIN
     Dates: start: 20140225
  59. GRATRYL [Concomitant]
     Indication: PREMEDICATION
     Route: 042
     Dates: start: 20140212, end: 20140213
  60. MOLIT PLUS [Concomitant]
     Indication: BREAST PAIN
     Route: 042
     Dates: start: 20140213, end: 20140213
  61. AMLOGARD [Concomitant]
     Indication: BREAST PAIN
     Route: 042
     Dates: start: 20140215, end: 20140225

REACTIONS (1)
  - Neuropathy peripheral [Recovered/Resolved]
